FAERS Safety Report 19405939 (Version 3)
Quarter: 2021Q3

REPORT INFORMATION
  Report Type: Spontaneous
  Country: US (occurrence: US)
  Receive Date: 20210611
  Receipt Date: 20210727
  Transmission Date: 20211014
  Serious: Yes (Other)
  Sender: FDA-Public Use
  Company Number: US-ASTRAZENECA-2021A500655

PATIENT
  Age: 67 Year
  Sex: Male
  Weight: 106.1 kg

DRUGS (4)
  1. BYDUREON [Suspect]
     Active Substance: EXENATIDE
     Indication: TYPE 2 DIABETES MELLITUS
     Route: 065
     Dates: start: 20130702, end: 20210604
  2. BYDUREON [Concomitant]
     Active Substance: EXENATIDE
     Dosage: BYDUREON SINGLE DOSE TRAY ONCE A WEEK ABOUT 10 YEARS AGO
  3. BYDUREON [Suspect]
     Active Substance: EXENATIDE
     Indication: GLYCOSYLATED HAEMOGLOBIN INCREASED
     Route: 065
     Dates: start: 20130702, end: 20210604
  4. BYDUREON [Concomitant]
     Active Substance: EXENATIDE
     Dosage: BYDUREON INJECTED DAILY

REACTIONS (9)
  - Localised infection [Unknown]
  - Peripheral swelling [Unknown]
  - Injection site mass [Unknown]
  - Device issue [Unknown]
  - Wrong technique in device usage process [Unknown]
  - Incorrect dose administered by device [Unknown]
  - Limb injury [Unknown]
  - Device use issue [Unknown]
  - Device delivery system issue [Unknown]
